FAERS Safety Report 8822895 (Version 1)
Quarter: 2012Q4

REPORT INFORMATION
  Report Type: 
  Country: BR (occurrence: BR)
  Receive Date: 20121003
  Receipt Date: 20121003
  Transmission Date: 20130627
  Serious: Yes (Hospitalization)
  Sender: FDA-Public Use
  Company Number: BR-ASTRAZENECA-2012SE74575

PATIENT
  Age: 49 Year
  Sex: Female
  Weight: 85 kg

DRUGS (5)
  1. CRESTOR [Suspect]
     Indication: BLOOD CHOLESTEROL INCREASED
     Route: 048
     Dates: end: 201104
  2. CRESTOR [Suspect]
     Indication: BLOOD CHOLESTEROL INCREASED
     Route: 048
     Dates: start: 201104, end: 201209
  3. CRESTOR [Suspect]
     Indication: BLOOD CHOLESTEROL INCREASED
     Route: 048
  4. ASPIRIN [Concomitant]
     Dates: start: 201104
  5. PLAVIX [Concomitant]
     Dates: start: 201104

REACTIONS (4)
  - Coronary artery occlusion [Recovered/Resolved]
  - Congenital heart valve disorder [Recovered/Resolved]
  - Drug ineffective [Unknown]
  - Blood cholesterol increased [Unknown]
